FAERS Safety Report 20799426 (Version 1)
Quarter: 2022Q2

REPORT INFORMATION
  Report Type: Report from Study
  Country: AR (occurrence: AR)
  Receive Date: 20220508
  Receipt Date: 20220508
  Transmission Date: 20220721
  Serious: Yes (Death)
  Sender: FDA-Public Use
  Company Number: AR-ABBVIE-22K-007-4383340-00

PATIENT
  Sex: Male

DRUGS (1)
  1. HUMIRA [Suspect]
     Active Substance: ADALIMUMAB
     Indication: Crohn^s disease
     Route: 058
     Dates: start: 20160217

REACTIONS (3)
  - Death [Fatal]
  - Hypophagia [Unknown]
  - Depression [Unknown]

NARRATIVE: CASE EVENT DATE: 20220101
